FAERS Safety Report 15464851 (Version 1)
Quarter: 2018Q4

REPORT INFORMATION
  Report Type: Spontaneous
  Country: US (occurrence: US)
  Receive Date: 20181004
  Receipt Date: 20181004
  Transmission Date: 20190204
  Serious: No
  Sender: FDA-Public Use
  Company Number: US-TARO-2017TAR00774

PATIENT
  Sex: Male

DRUGS (2)
  1. CLOTRIMAZOLE 1% CREAM [Suspect]
     Active Substance: CLOTRIMAZOLE
     Dosage: UNK, ONCE
     Route: 047
  2. CLOTRIMAZOLE 1% CREAM [Suspect]
     Active Substance: CLOTRIMAZOLE
     Indication: TINEA INFECTION
     Dosage: UNK

REACTIONS (2)
  - Swelling of eyelid [Recovering/Resolving]
  - Accidental exposure to product [Recovered/Resolved]
